FAERS Safety Report 18403838 (Version 1)
Quarter: 2020Q4

REPORT INFORMATION
  Report Type: Spontaneous
  Country: US (occurrence: US)
  Receive Date: 20201020
  Receipt Date: 20201020
  Transmission Date: 20210114
  Serious: Yes (Other)
  Sender: FDA-Public Use
  Company Number: US-UROGEN-2020-UGN-000037

PATIENT
  Age: 84 Year

DRUGS (1)
  1. JELMYTO [Suspect]
     Active Substance: MITOMYCIN
     Indication: PRODUCT USED FOR UNKNOWN INDICATION
     Dosage: UNK (INSTILLATION)

REACTIONS (2)
  - Haematuria [Unknown]
  - Urinary retention [Unknown]
